FAERS Safety Report 10136497 (Version 1)
Quarter: 2014Q2

REPORT INFORMATION
  Report Type: Spontaneous
  Country: US (occurrence: None)
  Receive Date: 20140428
  Receipt Date: 20140428
  Transmission Date: 20141212
  Serious: Yes (Life-Threatening, Hospitalization)
  Sender: FDA-Public Use
  Company Number: None

PATIENT
  Age: 58 Year
  Sex: Female

DRUGS (3)
  1. PEGASYS [Suspect]
     Indication: CHRONIC HEPATITIS C
     Dosage: INJECT 180 MCG SUBCUTANEOUSLY ONCE A WEEK
     Route: 058
     Dates: start: 20131114, end: 20140417
  2. RIBASPHERE [Concomitant]
  3. VICTRELIS [Concomitant]

REACTIONS (1)
  - Cerebrovascular accident [None]
